FAERS Safety Report 7934007-4 (Version None)
Quarter: 2011Q4

REPORT INFORMATION
  Report Type: 
  Country: None (occurrence: None)
  Receive Date: 20111122
  Receipt Date: 20111109
  Transmission Date: 20120403
  Serious: Yes (Hospitalization)
  Sender: FDA-Public Use
  Company Number: IT-ELI_LILLY_AND_COMPANY-IT201111002768

PATIENT
  Sex: Female

DRUGS (2)
  1. DULOXETINE HYDROCHLORIDE [Suspect]
     Indication: DEPRESSION
     Dosage: 60 MG, QD
     Route: 048
     Dates: start: 20110930, end: 20111030
  2. LASIX [Concomitant]
     Dosage: 25 MG, UNKNOWN

REACTIONS (3)
  - HYPONATRAEMIA [None]
  - DISORIENTATION [None]
  - URINARY INCONTINENCE [None]
